FAERS Safety Report 18617551 (Version 1)
Quarter: 2020Q4

REPORT INFORMATION
  Report Type: Spontaneous
  Country: DK (occurrence: DK)
  Receive Date: 20201215
  Receipt Date: 20201215
  Transmission Date: 20210114
  Serious: Yes (Hospitalization)
  Sender: FDA-Public Use
  Company Number: DK-TEVA-2020-DK-1857192

PATIENT
  Age: 76 Year
  Sex: Female

DRUGS (4)
  1. PANTOPRAZOL ACTAVIS [Concomitant]
     Active Substance: PANTOPRAZOLE SODIUM
     Indication: GASTROOESOPHAGEAL REFLUX DISEASE
     Dosage: UNIT DOSE : 40 MG
     Route: 048
     Dates: start: 20200116
  2. TRAZIMERA [Concomitant]
     Active Substance: TRASTUZUMAB-QYYP
     Indication: BREAST CANCER
     Dosage: STRENGTH: 420 MG TRASTUZUMAB IN 250 ML ISOTONIC SALINE, UNIT DOSE : 525 MG
     Route: 042
     Dates: start: 20181004
  3. CAPECITABINE. [Suspect]
     Active Substance: CAPECITABINE
     Indication: BREAST CANCER
     Dosage: UNIT DOSE : 1500 MG, PATIENT HAS BEEN TREATED ON/OFF SINCE 05MAY2020.
     Route: 048
     Dates: start: 20200505
  4. DOMPERIDON ALTERNOVA [Concomitant]
     Indication: ADVERSE DRUG REACTION
     Dosage: UNIT DOSE : 20 MG
     Route: 048
     Dates: start: 20200507

REACTIONS (4)
  - Dyspnoea [Unknown]
  - Pulmonary embolism [Not Recovered/Not Resolved]
  - Peripheral swelling [Unknown]
  - Thrombosis [Not Recovered/Not Resolved]

NARRATIVE: CASE EVENT DATE: 20201021
